FAERS Safety Report 5859572-2 (Version None)
Quarter: 2008Q3

REPORT INFORMATION
  Report Type: 
  Country: None (occurrence: None)
  Receive Date: 20080827
  Receipt Date: 20080822
  Transmission Date: 20090109
  Serious: No
  Sender: FDA-Public Use
  Company Number: B0529386A

PATIENT
  Age: 71 Year
  Sex: Female

DRUGS (15)
  1. REQUIP [Suspect]
     Indication: PARKINSON'S DISEASE
     Dosage: 3MG THREE TIMES PER DAY
     Route: 048
     Dates: start: 20080209
  2. TALIPEXOLE HYDROCHLORIDE [Suspect]
     Indication: PARKINSON'S DISEASE
     Dosage: 1.2MG THREE TIMES PER DAY
     Route: 048
     Dates: start: 20080705, end: 20080709
  3. DOPS (JAPAN) [Concomitant]
     Indication: PARKINSON'S DISEASE
     Dosage: 900MG PER DAY
     Route: 048
     Dates: end: 20080704
  4. MAGMITT [Concomitant]
     Route: 048
  5. CARBIDOPA + LEVODOPA [Concomitant]
     Indication: PARKINSON'S DISEASE
     Dosage: 900MG PER DAY
     Route: 048
  6. OPALMON [Concomitant]
     Route: 048
  7. CYANOCOBALAMIN [Concomitant]
  8. KETAS [Concomitant]
     Route: 048
  9. FUROSEMIDE [Concomitant]
  10. AMARYL [Concomitant]
     Route: 048
  11. ALOSITOL [Concomitant]
     Route: 048
  12. ARTIST [Concomitant]
     Route: 048
  13. ITOROL [Concomitant]
     Route: 048
  14. ATELEC [Concomitant]
     Route: 048
  15. DOPS (JAPAN) [Concomitant]
     Dosage: 900MG PER DAY
     Route: 048
     Dates: start: 20080709

REACTIONS (1)
  - SOMNOLENCE [None]
